FAERS Safety Report 10045795 (Version 2)
Quarter: 2014Q2

REPORT INFORMATION
  Report Type: Spontaneous
  Country: US (occurrence: US)
  Receive Date: 20140328
  Receipt Date: 20140427
  Transmission Date: 20141212
  Serious: No
  Sender: FDA-Public Use
  Company Number: US-009507513-1403USA005802

PATIENT
  Age: 31 Year
  Sex: Female
  Weight: 77.98 kg

DRUGS (1)
  1. MERCK STERILE DILUENT [Suspect]
     Dosage: UNK
     Dates: start: 20140311

REACTIONS (3)
  - Accidental exposure to product [Unknown]
  - Laceration [Not Recovered/Not Resolved]
  - Product quality issue [Unknown]
